FAERS Safety Report 10752029 (Version 1)
Quarter: 2015Q1

REPORT INFORMATION
  Report Type: Spontaneous
  Country: FR (occurrence: FR)
  Receive Date: 20150130
  Receipt Date: 20150130
  Transmission Date: 20150721
  Serious: Yes (Hospitalization)
  Sender: FDA-Public Use
  Company Number: FR-PFIZER INC-2015036023

PATIENT
  Age: 44 Year
  Sex: Female

DRUGS (4)
  1. TAZOCILLINE [Suspect]
     Active Substance: PIPERACILLIN SODIUM\TAZOBACTAM SODIUM
     Indication: PSEUDOMONAL SEPSIS
     Dosage: UNK
     Dates: start: 20140731
  2. CIFLOX [Suspect]
     Active Substance: CIPROFLOXACIN
     Indication: PSEUDOMONAL SEPSIS
     Dosage: UNK
     Dates: start: 20140731
  3. PIPERACILLIN [Suspect]
     Active Substance: PIPERACILLIN
     Indication: PSEUDOMONAL SEPSIS
     Dosage: UNK
     Dates: start: 20140804
  4. FORTUM [Suspect]
     Active Substance: CEFTAZIDIME
     Indication: PSEUDOMONAL SEPSIS
     Dosage: UNK
     Dates: start: 20140730

REACTIONS (1)
  - Drug reaction with eosinophilia and systemic symptoms [Recovered/Resolved with Sequelae]

NARRATIVE: CASE EVENT DATE: 201408
